FAERS Safety Report 8433861 (Version 4)
Quarter: 2013Q1

REPORT INFORMATION
  Report Type: Report from Study
  Country: DE (occurrence: DE)
  Receive Date: 20120229
  Receipt Date: 20130301
  Transmission Date: 20140127
  Serious: Yes (Hospitalization)
  Sender: FDA-Public Use
  Company Number: DE-ABBOTT-12P-062-0908342-00

PATIENT
  Sex: Male
  Weight: 98.5 kg

DRUGS (21)
  1. ZEMPLAR INJECTION [Suspect]
     Indication: MESANGIOPROLIFERATIVE GLOMERULONEPHRITIS
     Dosage: 5MCG ON MONDAY AND FRIDAY AFTER DIALYSIS
     Route: 042
     Dates: start: 20111202, end: 20120123
  2. TRANSTEC [Suspect]
     Indication: BACK PAIN
     Dosage: 52 MCG PER HOUR
     Dates: start: 20111223
  3. CLINDAMYCIN [Concomitant]
     Indication: PRODUCT USED FOR UNKNOWN INDICATION
     Route: 048
  4. CEFAZOLIN [Concomitant]
     Indication: PRODUCT USED FOR UNKNOWN INDICATION
  5. TOREM [Concomitant]
     Indication: RENAL FAILURE
     Route: 048
  6. AQUAPHOR [Concomitant]
     Indication: RENAL FAILURE
  7. ALLOPURINOL [Concomitant]
     Indication: HYPERURICAEMIA
  8. CARMEN [Concomitant]
     Indication: HYPERTENSION
     Route: 048
  9. DICLOFENAC [Concomitant]
     Indication: INTERVERTEBRAL DISCITIS
     Dosage: 75-150MG
     Route: 048
  10. INSUMAN [Concomitant]
     Indication: DIABETES MELLITUS
     Dosage: 4-5 X 10-18 IU
  11. CONCOR [Concomitant]
     Indication: HYPERTENSION
  12. PANTOZOL [Concomitant]
     Indication: GASTRITIS
     Route: 048
  13. CARENAL [Concomitant]
     Indication: RENAL FAILURE
     Route: 048
  14. ABSTRAL [Concomitant]
     Indication: INTERVERTEBRAL DISCITIS
     Route: 048
  15. DUROGESIC [Concomitant]
     Indication: INTERVERTEBRAL DISCITIS
  16. DUROGESIC [Concomitant]
     Dosage: 25 UG/HOUR
  17. METOCLOPRAMID [Concomitant]
     Indication: NAUSEA
     Dosage: WITH DUROGESIC
  18. VERGENTAN [Concomitant]
     Indication: NAUSEA
  19. FERRLECIT [Concomitant]
     Indication: ANAEMIA
     Dosage: ON MONDAY, WEDNESDAY AND FRIDAY
  20. DEKRISTOL [Concomitant]
     Indication: RENAL FAILURE
     Dosage: ON WEDNESDAY
     Route: 048
  21. BUPRENORPHIN (TEMGESIC) [Concomitant]
     Indication: BACK PAIN
     Route: 060
     Dates: start: 20111223

REACTIONS (6)
  - Intervertebral discitis [Unknown]
  - Hypertension [Recovered/Resolved]
  - Weight decreased [Recovered/Resolved]
  - Nausea [Unknown]
  - Vomiting [Unknown]
  - Groin pain [Not Recovered/Not Resolved]
